FAERS Safety Report 6758404-8 (Version None)
Quarter: 2010Q2

REPORT INFORMATION
  Report Type: 
  Country: None (occurrence: None)
  Receive Date: 20100607
  Receipt Date: 20100528
  Transmission Date: 20101027
  Serious: Yes (Other)
  Sender: FDA-Public Use
  Company Number: JP-ROCHE-604415

PATIENT
  Age: 47 Year
  Sex: Male

DRUGS (17)
  1. TOCILIZUMAB [Suspect]
     Indication: RHEUMATOID ARTHRITIS
     Route: 041
     Dates: start: 20080704, end: 20080704
  2. TOCILIZUMAB [Suspect]
     Route: 041
     Dates: start: 20080801, end: 20080801
  3. TOCILIZUMAB [Suspect]
     Route: 041
     Dates: start: 20080829, end: 20080829
  4. TOCILIZUMAB [Suspect]
     Route: 041
     Dates: start: 20080926, end: 20080926
  5. TOCILIZUMAB [Suspect]
     Route: 041
     Dates: start: 20081023, end: 20081023
  6. TOCILIZUMAB [Suspect]
     Route: 041
     Dates: start: 20081121, end: 20081121
  7. TOCILIZUMAB [Suspect]
     Route: 041
     Dates: start: 20081226
  8. METHOTREXATE [Concomitant]
     Dosage: DOSE FORM: PERORAL AGENT
     Route: 048
  9. PREDNISOLONE [Concomitant]
     Route: 048
     Dates: end: 20080925
  10. PREDNISOLONE [Concomitant]
     Route: 048
     Dates: end: 20080925
  11. PREDNISOLONE [Concomitant]
     Route: 048
     Dates: start: 20080926
  12. PREDNISOLONE [Concomitant]
     Route: 048
     Dates: start: 20081217
  13. GASTER D [Concomitant]
     Route: 048
  14. HYPEN [Concomitant]
     Route: 048
  15. CYTOTEC [Concomitant]
     Route: 050
  16. FOLIAMIN [Concomitant]
     Dosage: DOSE FORM: PERORAL AGENT
     Route: 048
  17. MOBIC [Concomitant]
     Route: 048

REACTIONS (1)
  - FACIAL PALSY [None]
